FAERS Safety Report 12379274 (Version 4)
Quarter: 2017Q1

REPORT INFORMATION
  Report Type: Spontaneous
  Country: US (occurrence: US)
  Receive Date: 20160517
  Receipt Date: 20170216
  Transmission Date: 20170428
  Serious: No
  Sender: FDA-Public Use
  Company Number: US-RELYPSA-RLY2016000358

PATIENT
  Sex: Male

DRUGS (19)
  1. OMEPRAZOLE. [Concomitant]
     Active Substance: OMEPRAZOLE
     Dosage: 20 MG, UNK
  2. CALCIUM CARBONATE. [Concomitant]
     Active Substance: CALCIUM CARBONATE
  3. VELTASSA [Suspect]
     Active Substance: PATIROMER
     Dosage: 8.4 G, QOD
     Route: 048
     Dates: start: 201604
  4. PRAVASTATIN SODIUM. [Concomitant]
     Active Substance: PRAVASTATIN SODIUM
  5. VALSARTAN. [Concomitant]
     Active Substance: VALSARTAN
     Dosage: 80 MG, UNK
  6. ASPIRIN. [Concomitant]
     Active Substance: ASPIRIN
  7. MULTIVITAMIN [Concomitant]
     Active Substance: VITAMINS
  8. TYLENOL CHEST CONGESTION [Concomitant]
  9. VELTASSA [Suspect]
     Active Substance: PATIROMER
     Indication: HYPERKALAEMIA
     Dosage: 8.4 G, QD
     Route: 048
     Dates: start: 201602, end: 201603
  10. LASIX [Concomitant]
     Active Substance: FUROSEMIDE
  11. METOPROLOL SUCCINATE. [Concomitant]
     Active Substance: METOPROLOL SUCCINATE
     Dosage: 50 MG, UNK
  12. TYLENOL [Concomitant]
     Active Substance: ACETAMINOPHEN
  13. FISH OIL [Concomitant]
     Active Substance: FISH OIL
  14. VITAMIN D [Concomitant]
     Active Substance: CHOLECALCIFEROL
  15. AMLODIPINE BESYLATE. [Concomitant]
     Active Substance: AMLODIPINE BESYLATE
     Dosage: 5 MG, UNK
  16. ATORVASTATIN [Concomitant]
     Active Substance: ATORVASTATIN
     Dosage: 40 MG, UNK
  17. VELTASSA [Suspect]
     Active Substance: PATIROMER
     Dosage: 8.4 G, 2 DAYS AND 1 DAY OFF
     Route: 048
     Dates: start: 201603, end: 2016
  18. ALLOPURINOL. [Concomitant]
     Active Substance: ALLOPURINOL
     Dosage: 100 MG, UNK
  19. COENZYME Q10 [Concomitant]
     Active Substance: UBIDECARENONE

REACTIONS (4)
  - Inappropriate schedule of drug administration [Unknown]
  - Product closure removal difficult [Unknown]
  - Muscle spasms [Unknown]
  - Constipation [Unknown]

NARRATIVE: CASE EVENT DATE: 2016
